FAERS Safety Report 13092480 (Version 1)
Quarter: 2017Q1

REPORT INFORMATION
  Report Type: Spontaneous
  Country: US (occurrence: US)
  Receive Date: 20170105
  Receipt Date: 20170105
  Transmission Date: 20170428
  Serious: No
  Sender: FDA-Public Use
  Company Number: None

PATIENT
  Age: 45 Year
  Sex: Female

DRUGS (2)
  1. ENBREL [Suspect]
     Active Substance: ETANERCEPT
     Indication: RHEUMATOID ARTHRITIS
  2. ENBREL [Suspect]
     Active Substance: ETANERCEPT
     Indication: JUVENILE IDIOPATHIC ARTHRITIS

REACTIONS (7)
  - Injection site erythema [None]
  - Injection site pruritus [None]
  - Chills [None]
  - Asthenia [None]
  - Injection site warmth [None]
  - Nausea [None]
  - Injection site swelling [None]

NARRATIVE: CASE EVENT DATE: 20170103
